FAERS Safety Report 8052971-2 (Version None)
Quarter: 2012Q1

REPORT INFORMATION
  Report Type: 
  Country: None (occurrence: None)
  Receive Date: 20120118
  Receipt Date: 20120106
  Transmission Date: 20120608
  Serious: Yes (Death, Hospitalization)
  Sender: FDA-Public Use
  Company Number: KR-MILLENNIUM PHARMACEUTICALS, INC.-2011-01252

PATIENT

DRUGS (7)
  1. VELCADE [Suspect]
     Indication: MULTIPLE MYELOMA
     Dosage: 1.3 MG/M2, CYCLIC
     Route: 065
     Dates: start: 20110216, end: 20110421
  2. DIMENHYDRINATE [Concomitant]
     Indication: PROPHYLAXIS
     Dosage: 25 MG, UNK
     Route: 048
     Dates: start: 20100216
  3. MELPHALAN [Concomitant]
     Indication: MULTIPLE MYELOMA
     Dosage: 6 MG, UNK
     Route: 048
     Dates: start: 20100216
  4. FLUVOXAMINE MALEATE [Concomitant]
     Indication: SEDATIVE THERAPY
     Dosage: 50 MG, UNK
     Route: 048
     Dates: start: 20100216
  5. FENTANYL [Concomitant]
     Indication: PAIN PROPHYLAXIS
     Dosage: 12 UG, UNK
     Route: 065
     Dates: start: 20100216
  6. PREDNISOLONE [Concomitant]
     Indication: MULTIPLE MYELOMA
     Dosage: 45 MG, UNK
     Route: 048
     Dates: start: 20100216
  7. ACYCLOVIR [Concomitant]
     Indication: INFECTION PROPHYLAXIS
     Dosage: 200 MG, UNK
     Route: 048
     Dates: start: 20100216

REACTIONS (3)
  - DEATH [None]
  - RESPIRATORY FAILURE [None]
  - MENTAL STATUS CHANGES [None]
